FAERS Safety Report 20753774 (Version 1)
Quarter: 2022Q2

REPORT INFORMATION
  Report Type: Spontaneous
  Country: US (occurrence: None)
  Receive Date: 20220426
  Receipt Date: 20220426
  Transmission Date: 20220720
  Serious: No
  Sender: FDA-Public Use
  Company Number: US-ROCHE-2960838

PATIENT
  Sex: Male

DRUGS (8)
  1. ESBRIET [Suspect]
     Active Substance: PIRFENIDONE
     Indication: Interstitial lung disease
     Route: 048
     Dates: start: 202105, end: 202108
  2. DOCQLACE [Concomitant]
     Active Substance: DOCUSATE SODIUM
  3. DEXTROMETHORF [Concomitant]
     Dosage: SYR 10-100 MG
  4. ENTECAVIR [Concomitant]
     Active Substance: ENTECAVIR
  5. MELATONIN [Concomitant]
     Active Substance: MELATONIN
     Dosage: TBD
  6. TACROLIMUS [Concomitant]
     Active Substance: TACROLIMUS
  7. TRAZODONE HCL [Concomitant]
     Active Substance: TRAZODONE HYDROCHLORIDE
  8. TYLENOL [Concomitant]
     Active Substance: ACETAMINOPHEN

REACTIONS (1)
  - Diarrhoea [Recovered/Resolved]
